FAERS Safety Report 5218234-5 (Version None)
Quarter: 2007Q1

REPORT INFORMATION
  Report Type: 
  Country: None (occurrence: None)
  Receive Date: 20061130
  Receipt Date: 20060524
  Transmission Date: 20070707
  Serious: Yes (Hospitalization)
  Sender: FDA-Public Use
  Company Number: US200605005453

PATIENT
  Age: 75 Year
  Sex: Female

DRUGS (7)
  1. ZYPREXA [Suspect]
     Indication: BIPOLAR DISORDER
     Dosage: SEE IMAGE
     Dates: start: 20020101, end: 20060101
  2. AMITRIPTYLINE HCL [Concomitant]
  3. LITHIUM CARBONATE [Concomitant]
  4. ASPIRIN [Concomitant]
  5. LIPITOR [Concomitant]
  6. PREMARIN [Concomitant]
  7. PROTONIX [Concomitant]

REACTIONS (9)
  - ABDOMINAL PAIN UPPER [None]
  - DECREASED APPETITE [None]
  - ERUCTATION [None]
  - INCREASED APPETITE [None]
  - IRRITABLE BOWEL SYNDROME [None]
  - LETHARGY [None]
  - MALAISE [None]
  - NAUSEA [None]
  - WEIGHT DECREASED [None]
